FAERS Safety Report 7060686-2 (Version None)
Quarter: 2010Q4

REPORT INFORMATION
  Report Type: 
  Country: None (occurrence: None)
  Receive Date: 20101025
  Receipt Date: 20101016
  Transmission Date: 20110411
  Serious: Yes (Other)
  Sender: FDA-Public Use
  Company Number: CA-ROCHE-708292

PATIENT

DRUGS (5)
  1. PEGASYS [Suspect]
     Indication: HEPATITIS C
     Dosage: FREQUENCY: WEEKLY
     Dates: start: 20081215
  2. COPEGUS [Suspect]
     Indication: HEPATITIS C
     Dosage: 02 DOSEFORM EVERY MORNING AND 03 DOSE FORM EVERY NIGHT
     Dates: start: 20081215
  3. TESTOSTERONE [Concomitant]
     Indication: LIBIDO DISORDER
     Dosage: FREQUENCY: 1X Q2/52.ADDITIONAL INDICATION APPETITE
     Dates: start: 20090101
  4. GABAPENTIN [Concomitant]
     Indication: PAIN
     Dosage: FORM:PILL, 1XTID
  5. PERCOCET [Concomitant]
     Indication: PAIN

REACTIONS (2)
  - STILLBIRTH [None]
  - UMBILICAL CORD VASCULAR DISORDER [None]
